FAERS Safety Report 9270566 (Version 1)
Quarter: 2013Q2

REPORT INFORMATION
  Report Type: Spontaneous
  Country: FR (occurrence: FR)
  Receive Date: 20130503
  Receipt Date: 20130503
  Transmission Date: 20140414
  Serious: Yes (Other)
  Sender: FDA-Public Use
  Company Number: PHHY2013FR043223

PATIENT
  Sex: Male

DRUGS (1)
  1. METOPROLOL [Suspect]
     Indication: SUPRAVENTRICULAR TACHYARRHYTHMIA
     Dosage: MATERNAL DOSE: 2.5 MG DAILY
     Route: 064

REACTIONS (5)
  - Premature baby [Recovering/Resolving]
  - Low birth weight baby [Recovering/Resolving]
  - Atrial fibrillation [Recovering/Resolving]
  - Tachycardia [Recovering/Resolving]
  - Foetal exposure during pregnancy [Unknown]
